FAERS Safety Report 9266799 (Version 1)
Quarter: 2013Q2

REPORT INFORMATION
  Report Type: Spontaneous
  Country: US (occurrence: US)
  Receive Date: 20130502
  Receipt Date: 20130502
  Transmission Date: 20140414
  Serious: No
  Sender: FDA-Public Use
  Company Number: US-TEVA-402532USA

PATIENT
  Age: 31 Year
  Sex: Female
  Weight: 54.48 kg

DRUGS (2)
  1. PLAN B ONE-STEP [Suspect]
     Indication: POST COITAL CONTRACEPTION
     Dosage: 1.5 MILLIGRAM DAILY;
     Route: 048
     Dates: start: 20130416, end: 20130416
  2. MICROGESTIN [Concomitant]
     Indication: CONTRACEPTION
     Dates: start: 2011

REACTIONS (3)
  - Nipple pain [Not Recovered/Not Resolved]
  - Lactation disorder [Not Recovered/Not Resolved]
  - Breast pain [Not Recovered/Not Resolved]
